FAERS Safety Report 6095347-X (Version None)
Quarter: 2009Q1

REPORT INFORMATION
  Report Type: 
  Country: None (occurrence: None)
  Receive Date: 20090227
  Receipt Date: 20080312
  Transmission Date: 20090719
  Serious: No
  Sender: FDA-Public Use
  Company Number: A0714953A

PATIENT
  Age: 52 Year
  Sex: Female

DRUGS (7)
  1. LAMICTAL [Suspect]
     Indication: BIPOLAR DISORDER
     Dosage: 25MG PER DAY
     Route: 048
     Dates: start: 20080229
  2. PAXIL [Suspect]
     Dosage: 10MG PER DAY
     Route: 048
     Dates: start: 20060101
  3. ADVAIR HFA [Concomitant]
  4. ALLEGRA [Concomitant]
  5. MOTRIN [Concomitant]
  6. FIORICET [Concomitant]
     Indication: HEADACHE
  7. VITAMIN [Concomitant]

REACTIONS (1)
  - HEADACHE [None]
